FAERS Safety Report 5320731-9 (Version None)
Quarter: 2007Q1

REPORT INFORMATION
  Report Type: 
  Country: None (occurrence: None)
  Receive Date: 20070220
  Receipt Date: 20061213
  Transmission Date: 20070707
  Serious: No
  Sender: FDA-Public Use
  Company Number: WAES 0612USA02631

PATIENT
  Age: 61 Year
  Sex: Male

DRUGS (12)
  1. JANUVIA [Suspect]
     Indication: DIABETES MELLITUS NON-INSULIN-DEPENDENT
     Dosage: 100 MG/DAILY/PO
     Route: 048
     Dates: start: 20061201
  2. KLOR-CON [Concomitant]
  3. LIPITOR [Concomitant]
  4. NORVASC [Concomitant]
  5. PLAVIX [Concomitant]
  6. ALLOPURINOL [Concomitant]
  7. ASPIRIN [Concomitant]
  8. FUROSEMIDE [Concomitant]
  9. INFLUENZA VIRUS VACCINE (UNSPECI [Concomitant]
  10. LISINOPRIL [Concomitant]
  11. SPIRONOLACTONE [Concomitant]
  12. TRAMADOL HCL [Concomitant]

REACTIONS (5)
  - BLOOD GLUCOSE INCREASED [None]
  - HEADACHE [None]
  - NASAL CONGESTION [None]
  - PHARYNGOLARYNGEAL PAIN [None]
  - PRODUCTIVE COUGH [None]
